FAERS Safety Report 6220211-2 (Version None)
Quarter: 2009Q2

REPORT INFORMATION
  Report Type: 
  Country: None (occurrence: None)
  Receive Date: 20090605
  Receipt Date: 20090521
  Transmission Date: 20091009
  Serious: Yes (Hospitalization)
  Sender: FDA-Public Use
  Company Number: 2009S1006609

PATIENT
  Age: 24 Year
  Sex: Female

DRUGS (5)
  1. LAMOTRIGINE [Suspect]
     Indication: DEPRESSION
     Dosage: 4200 MG; ORAL; ONCE, 100 MG; ORAL; TWICE A DAY
     Route: 048
  2. LAMOTRIGINE [Suspect]
     Indication: PSYCHOTIC DISORDER
     Dosage: 4200 MG; ORAL; ONCE, 100 MG; ORAL; TWICE A DAY
     Route: 048
  3. ETHANOL (ETHANOL) [Suspect]
     Indication: DRUG USE FOR UNKNOWN INDICATION
     Dosage: 750 MG; ORAL; TWICE A DAY, ORAL
     Route: 048
  4. MIRTAZAPINE [Concomitant]
  5. RISPERIDONE [Concomitant]

REACTIONS (9)
  - ALCOHOL ABUSE [None]
  - ALTERED STATE OF CONSCIOUSNESS [None]
  - ATAXIA [None]
  - INTENTIONAL OVERDOSE [None]
  - INTENTIONAL SELF-INJURY [None]
  - METABOLIC ACIDOSIS [None]
  - NYSTAGMUS [None]
  - PANCREATITIS ACUTE [None]
  - TACHYCARDIA [None]
